FAERS Safety Report 6762954-8 (Version None)
Quarter: 2010Q2

REPORT INFORMATION
  Report Type: 
  Country: None (occurrence: None)
  Receive Date: 20100609
  Receipt Date: 20100528
  Transmission Date: 20101027
  Serious: Yes (Other)
  Sender: FDA-Public Use
  Company Number: US-PFIZER INC-2010043297

PATIENT
  Sex: Female
  Weight: 113.85 kg

DRUGS (15)
  1. ZYVOX [Suspect]
     Indication: STAPHYLOCOCCAL INFECTION
     Dosage: 500 MG, 2X/DAY
     Route: 048
     Dates: start: 20100423, end: 20100503
  2. NORVASC [Concomitant]
     Dosage: UNK
  3. SEROQUEL [Concomitant]
     Dosage: UNK
  4. RESTORIL [Concomitant]
     Dosage: UNK
  5. ATIVAN [Concomitant]
     Dosage: UNK
  6. NEURONTIN [Concomitant]
     Dosage: UNK
  7. METHADONE [Concomitant]
     Dosage: UNK
  8. LISINOPRIL [Concomitant]
     Dosage: UNK
  9. ADVAIR DISKUS 100/50 [Concomitant]
     Dosage: UNK
  10. ASTELIN [Concomitant]
     Dosage: UNK
  11. FLONASE [Concomitant]
     Dosage: UNK
  12. COMBIVENT [Concomitant]
     Dosage: UNK
  13. SINGULAIR ^DIECKMANN^ [Concomitant]
     Dosage: UNK
  14. DUONEB [Concomitant]
     Dosage: UNK
  15. OXYGEN [Concomitant]
     Dosage: UNK

REACTIONS (3)
  - GOUT [None]
  - HYPERSENSITIVITY [None]
  - HYPERTENSION [None]
